FAERS Safety Report 19928010 (Version 1)
Quarter: 2021Q4

REPORT INFORMATION
  Report Type: Spontaneous
  Country: US (occurrence: US)
  Receive Date: 20211007
  Receipt Date: 20211007
  Transmission Date: 20220303
  Serious: Yes (Other)
  Sender: FDA-Public Use
  Company Number: US-GILEAD-2021-0551150

PATIENT
  Sex: Male

DRUGS (1)
  1. EPCLUSA [Suspect]
     Active Substance: SOFOSBUVIR\VELPATASVIR
     Indication: Chronic hepatitis C
     Dosage: UNK
     Route: 065

REACTIONS (10)
  - Drug ineffective [Unknown]
  - Dysarthria [Unknown]
  - Mental impairment [Unknown]
  - Arthralgia [Unknown]
  - Headache [Unknown]
  - Pain of skin [Unknown]
  - Skin mass [Unknown]
  - Skin exfoliation [Unknown]
  - Injection site pain [Unknown]
  - Off label use [Unknown]
